FAERS Safety Report 5162167-X (Version None)
Quarter: 2006Q4

REPORT INFORMATION
  Report Type: 
  Country: None (occurrence: None)
  Receive Date: 20061121
  Receipt Date: 20061113
  Transmission Date: 20070319
  Serious: Yes (Other)
  Sender: FDA-Public Use
  Company Number: 2006SP006339

PATIENT
  Age: 38 Year
  Sex: Female

DRUGS (4)
  1. NASONEX [Suspect]
     Indication: DYSPNOEA
     Dosage: 200 MCG; BID; NAS
     Route: 045
     Dates: start: 20060103
  2. NASONEX [Suspect]
     Indication: INFLAMMATION
     Dosage: 200 MCG; BID; NAS
     Route: 045
     Dates: start: 20060103
  3. NASONEX [Suspect]
     Indication: NASAL SEPTUM DISORDER
     Dosage: 200 MCG; BID; NAS
     Route: 045
     Dates: start: 20060103
  4. NASONEX [Suspect]
     Indication: SWELLING
     Dosage: 200 MCG; BID; NAS
     Route: 045
     Dates: start: 20060103

REACTIONS (5)
  - EPISTAXIS [None]
  - NASAL DISCOMFORT [None]
  - NASAL DRYNESS [None]
  - NASAL SEPTUM DISORDER [None]
  - NASAL SEPTUM PERFORATION [None]
